FAERS Safety Report 11794015 (Version 1)
Quarter: 2015Q4

REPORT INFORMATION
  Report Type: Spontaneous
  Country: US (occurrence: US)
  Receive Date: 20151202
  Receipt Date: 20151202
  Transmission Date: 20160305
  Serious: No
  Sender: FDA-Public Use
  Company Number: PHEH2015US024985

PATIENT
  Age: 41 Year
  Sex: Female
  Weight: 88.45 kg

DRUGS (2)
  1. JADENU [Suspect]
     Active Substance: DEFERASIROX
     Indication: IRON OVERLOAD
     Dosage: 1600 MG, QD
     Route: 048
     Dates: start: 20150925
  2. MOTRIN [Concomitant]
     Active Substance: IBUPROFEN
     Indication: SICKLE CELL ANAEMIA
     Dosage: 800 MG, PRN (AS NEEDED)
     Route: 048
     Dates: start: 19951127

REACTIONS (1)
  - Appetite disorder [Unknown]

NARRATIVE: CASE EVENT DATE: 20151127
